FAERS Safety Report 6419880-3 (Version None)
Quarter: 2009Q4

REPORT INFORMATION
  Report Type: 
  Country: None (occurrence: None)
  Receive Date: 20091029
  Receipt Date: 20091020
  Transmission Date: 20100525
  Serious: Yes (Death)
  Sender: FDA-Public Use
  Company Number: GB-MERCK-0909GBR00067

PATIENT
  Age: 35 Year
  Sex: Female
  Weight: 51 kg

DRUGS (14)
  1. CANCIDAS [Suspect]
     Indication: FUNGAL INFECTION
     Route: 042
     Dates: start: 20090411, end: 20090508
  2. RANITIDINE [Concomitant]
     Indication: PROPHYLAXIS
     Route: 065
     Dates: start: 20090407, end: 20090511
  3. CIDOFOVIR [Concomitant]
     Indication: PROPHYLAXIS
     Route: 065
     Dates: start: 20090419, end: 20090511
  4. NORETHINDRONE [Concomitant]
     Indication: PROPHYLAXIS
     Route: 065
     Dates: start: 20090419, end: 20090511
  5. AMLODIPINE [Concomitant]
     Indication: BLOOD PRESSURE
     Route: 065
     Dates: start: 20090419, end: 20090511
  6. DEXAMETHASONE [Concomitant]
     Indication: LEUKAEMIA
     Route: 065
     Dates: start: 20090422, end: 20090503
  7. MEROPENEM [Concomitant]
     Indication: NEUTROPENIC SEPSIS
     Route: 065
     Dates: start: 20090416, end: 20090424
  8. HYDROXYUREA [Concomitant]
     Indication: WHITE BLOOD CELL COUNT INCREASED
     Route: 065
     Dates: start: 20090407, end: 20090412
  9. PHYTONADIONE [Concomitant]
     Route: 065
  10. PIPERACILLIN SODIUM AND TAZOBACTAM SODIUM [Concomitant]
     Route: 065
     Dates: start: 20090407, end: 20090412
  11. GENTAMICIN [Concomitant]
     Indication: NEUTROPENIC SEPSIS
     Route: 065
     Dates: start: 20090407, end: 20090412
  12. CYTARABINE [Concomitant]
     Indication: ACUTE BIPHENOTYPIC LEUKAEMIA
     Route: 065
  13. IDARUBICIN HYDROCHLORIDE [Concomitant]
     Indication: ACUTE BIPHENOTYPIC LEUKAEMIA
     Route: 065
  14. AMPHOTERICIN B AND CHOLESTEROL AND DISTEAROYLPHOSPHATIDYLGLYCEROL AND [Concomitant]
     Indication: FUNGAL INFECTION
     Route: 065

REACTIONS (5)
  - ASPERGILLOSIS [None]
  - DRUG INEFFECTIVE [None]
  - HEPATIC FAILURE [None]
  - PULMONARY HAEMORRHAGE [None]
  - RENAL FAILURE [None]
